FAERS Safety Report 18002032 (Version 2)
Quarter: 2021Q4

REPORT INFORMATION
  Report Type: Spontaneous
  Country: FI (occurrence: FI)
  Receive Date: 20200709
  Receipt Date: 20211013
  Transmission Date: 20220303
  Serious: Yes (Life-Threatening, Other)
  Sender: FDA-Public Use
  Company Number: None

PATIENT
  Age: 28 Year
  Sex: Male

DRUGS (7)
  1. QUETIAPINE [Suspect]
     Active Substance: QUETIAPINE
     Indication: Sleep disorder
     Dosage: 900,MG,DAILY
     Route: 048
     Dates: start: 200710
  2. QUETIAPINE [Suspect]
     Active Substance: QUETIAPINE
     Indication: Bipolar disorder
     Dosage: UNK
     Route: 048
     Dates: start: 2006
  3. QUETIAPINE [Suspect]
     Active Substance: QUETIAPINE
     Indication: Mood altered
  4. MEDIPAM [Concomitant]
     Dosage: AS NECESSARY
     Route: 048
  5. TEMAZEPAM [Concomitant]
     Active Substance: TEMAZEPAM
     Indication: Insomnia
     Dosage: AS NECESSARY
     Route: 048
  6. BISOPROLOL [Concomitant]
     Active Substance: BISOPROLOL
     Indication: Migraine prophylaxis
     Dosage: 10,MG,DAILY
     Route: 048
  7. ZOLPIDEM TARTRATE [Concomitant]
     Active Substance: ZOLPIDEM TARTRATE
     Indication: Insomnia
     Dosage: AS NECESSARY
     Route: 048

REACTIONS (21)
  - Hypomania [Recovering/Resolving]
  - Panic attack [Recovering/Resolving]
  - Paralysis [Recovering/Resolving]
  - Disturbance in attention [Recovering/Resolving]
  - Suffocation feeling [Recovering/Resolving]
  - Anxiety [Recovering/Resolving]
  - Bulimia nervosa [Recovering/Resolving]
  - Paranoia [Recovering/Resolving]
  - Fear [Recovering/Resolving]
  - Hyporeflexia [Recovering/Resolving]
  - Feeling cold [Recovering/Resolving]
  - Insomnia [Recovering/Resolving]
  - Drug withdrawal syndrome [Recovering/Resolving]
  - Sexual dysfunction [Recovering/Resolving]
  - Dysphagia [Recovering/Resolving]
  - Dysarthria [Recovering/Resolving]
  - Weight increased [Recovering/Resolving]
  - Vision blurred [Recovering/Resolving]
  - Drug dependence [Recovering/Resolving]
  - Nightmare [Recovering/Resolving]
  - Hyporeflexia [Recovering/Resolving]

NARRATIVE: CASE EVENT DATE: 20060101
